FAERS Safety Report 6432925-X (Version None)
Quarter: 2009Q4

REPORT INFORMATION
  Report Type: 
  Country: None (occurrence: None)
  Receive Date: 20091109
  Receipt Date: 20091104
  Transmission Date: 20100525
  Serious: Yes (Other)
  Sender: FDA-Public Use
  Company Number: US-MERCK-0802USA05761

PATIENT
  Age: 88 Year
  Sex: Female
  Weight: 66 kg

DRUGS (3)
  1. FOSAMAX [Suspect]
     Indication: OSTEOPOROSIS
     Route: 048
     Dates: start: 20010601, end: 20070801
  2. COZAAR [Concomitant]
     Route: 065
  3. LOVASTATIN [Concomitant]
     Route: 065

REACTIONS (21)
  - ADVERSE EVENT [None]
  - BONE DISORDER [None]
  - CHEST PAIN [None]
  - COMPRESSION FRACTURE [None]
  - DENTAL CARIES [None]
  - EDENTULOUS [None]
  - EXOSTOSIS [None]
  - FISTULA [None]
  - HYPOAESTHESIA [None]
  - INAPPROPRIATE SCHEDULE OF DRUG ADMINISTRATION [None]
  - ORAL DISORDER [None]
  - ORAL PAIN [None]
  - OSTEONECROSIS [None]
  - OSTEOPOROSIS [None]
  - PAIN IN EXTREMITY [None]
  - PAIN IN JAW [None]
  - PARAESTHESIA [None]
  - SPINAL OSTEOARTHRITIS [None]
  - TOOTH ABSCESS [None]
  - TRISMUS [None]
  - URTICARIA [None]
